FAERS Safety Report 24810524 (Version 1)
Quarter: 2025Q1

REPORT INFORMATION
  Report Type: Report from Study
  Country: CN (occurrence: CN)
  Receive Date: 20250106
  Receipt Date: 20250106
  Transmission Date: 20250408
  Serious: Yes (Other)
  Sender: PFIZER
  Company Number: CN-TAKEDA-2023TUS087819

PATIENT
  Age: 29 Year
  Sex: Female
  Weight: 58 kg

DRUGS (32)
  1. BRENTUXIMAB VEDOTIN [Suspect]
     Active Substance: BRENTUXIMAB VEDOTIN
     Indication: Hodgkin^s disease nodular sclerosis
     Route: 041
     Dates: start: 20230816
  2. DOXORUBICIN HYDROCHLORIDE [Suspect]
     Active Substance: DOXORUBICIN HYDROCHLORIDE
     Indication: Lymphoma
     Dosage: 20 MG, 1X/DAY
     Route: 042
     Dates: start: 20230816
  3. DACARBAZINE [Suspect]
     Active Substance: DACARBAZINE
     Indication: Lymphoma
     Dosage: 600 MG, 1X/DAY
     Route: 042
     Dates: start: 20230816
  4. VINDESINE SULFATE [Suspect]
     Active Substance: VINDESINE SULFATE
     Indication: Lymphoma
     Dosage: 4 MG, 1X/DAY
     Route: 041
     Dates: start: 20230816
  5. VINDESINE [Suspect]
     Active Substance: VINDESINE
     Indication: Lymphoma
     Dosage: 4 MG, 1X/DAY
     Route: 042
     Dates: start: 20230816
  6. DEXAMETHASONE [Concomitant]
     Active Substance: DEXAMETHASONE
     Indication: Prophylaxis
     Dosage: 5 MG, 1X/DAY
     Route: 042
     Dates: start: 20230816
  7. DEXAMETHASONE [Concomitant]
     Active Substance: DEXAMETHASONE
     Indication: Hodgkin^s disease nodular sclerosis
  8. OMEPRAZOLE [Concomitant]
     Active Substance: OMEPRAZOLE
     Indication: Prophylaxis
     Dosage: 40 MG, 1X/DAY
     Route: 048
     Dates: start: 20230816, end: 20230816
  9. OMEPRAZOLE [Concomitant]
     Active Substance: OMEPRAZOLE
     Dosage: UNK, QD
     Route: 048
     Dates: start: 20231026, end: 20231026
  10. PALONOSETRON HYDROCHLORIDE [Concomitant]
     Active Substance: PALONOSETRON HYDROCHLORIDE
     Indication: Prophylaxis
     Dosage: UNK UNK, QD
     Route: 048
     Dates: start: 20230816, end: 20230816
  11. PALONOSETRON HYDROCHLORIDE [Concomitant]
     Active Substance: PALONOSETRON HYDROCHLORIDE
     Dosage: 0.5 MG, 1X/DAY
     Route: 048
     Dates: start: 20231026, end: 20231026
  12. VITAMIN B6 [Concomitant]
     Active Substance: PYRIDOXINE HYDROCHLORIDE
     Indication: Prophylaxis
     Dosage: 0.2 GRAM, QD
     Route: 042
     Dates: start: 20230816
  13. VITAMIN B6 [Concomitant]
     Active Substance: PYRIDOXINE HYDROCHLORIDE
  14. ACETYLCYSTEINE [Concomitant]
     Active Substance: ACETYLCYSTEINE
     Indication: Prophylaxis
     Dosage: 0.6 GRAM, QD
     Route: 048
     Dates: start: 20230816, end: 20230816
  15. ACETYLCYSTEINE [Concomitant]
     Active Substance: ACETYLCYSTEINE
     Dosage: 0.6 GRAM, QD
     Route: 048
     Dates: start: 20230911
  16. LEUCOGEN [Concomitant]
     Active Substance: LEUCOGEN
     Indication: White blood cell count increased
     Dosage: 20 MG, 3X/DAY
     Route: 048
     Dates: start: 20230816
  17. CEFACLOR [Concomitant]
     Active Substance: CEFACLOR
     Indication: Infection prophylaxis
     Dosage: 375 MG, 2X/DAY (SUSPENSION)
     Route: 048
     Dates: start: 20230816
  18. MONTMORILLONITE [Concomitant]
     Active Substance: MONTMORILLONITE
     Indication: Prophylaxis against diarrhoea
     Dosage: 3 G, 3X/DAY
     Route: 048
     Dates: start: 20230816, end: 20230816
  19. MONTMORILLONITE [Concomitant]
     Active Substance: MONTMORILLONITE
     Indication: Prophylaxis against diarrhoea
     Dosage: 3 G, 3X/DAY
     Route: 048
     Dates: start: 20230816, end: 20230816
  20. DOXORUBICIN HYDROCHLORIDE [Concomitant]
     Active Substance: DOXORUBICIN HYDROCHLORIDE
     Indication: Hodgkin^s disease nodular sclerosis
     Dosage: 20 MG, 1X/DAY
     Route: 042
     Dates: start: 20230918
  21. BICYCLOL [Concomitant]
     Active Substance: BICYCLOL
     Indication: Prophylaxis
     Dosage: 50 MG, 3X/DAY
     Route: 048
     Dates: start: 20230906, end: 20230906
  22. BICYCLOL [Concomitant]
     Active Substance: BICYCLOL
     Dosage: 325 MG, 3X/DAY
     Route: 048
  23. GRANULOCYTE COLONY-STIMULATING FACTOR NOS [Concomitant]
     Active Substance: GRANULOCYTE COLONY-STIMULATING FACTOR NOS
     Indication: White blood cell count increased
     Dosage: 300 UG, 1X/DAY
     Route: 058
     Dates: start: 20230911, end: 20230911
  24. GRANULOCYTE COLONY-STIMULATING FACTOR NOS [Concomitant]
     Active Substance: GRANULOCYTE COLONY-STIMULATING FACTOR NOS
     Dosage: 200 UG, 1X/DAY
     Route: 058
     Dates: start: 20231110, end: 20231110
  25. HERBALS\DIAMMONIUM GLYCYRRHIZINATE [Concomitant]
     Active Substance: HERBALS\DIAMMONIUM GLYCYRRHIZINATE
     Indication: Prophylaxis
     Dosage: 100 MG, 3X/DAY
     Route: 048
     Dates: start: 20230911
  26. ANF-RHO [Concomitant]
     Active Substance: ANF-RHO
     Indication: White blood cell count increased
     Dosage: 6 MG, 1X/DAY
     Route: 058
     Dates: start: 20231115, end: 20231115
  27. ANF-RHO [Concomitant]
     Active Substance: ANF-RHO
     Dosage: 6 MG, 1X/DAY
     Route: 058
  28. GRANULOCYTE COLONY-STIMULATING FACTOR NOS [Concomitant]
     Active Substance: GRANULOCYTE COLONY-STIMULATING FACTOR NOS
     Dosage: 200 UG, 1X/DAY
     Route: 058
  29. PHOSPHOLIPID [Concomitant]
     Active Substance: PHOSPHOLIPID
     Dosage: 228 MG, 3X/DAY
     Route: 048
  30. SCHISANDRA SPHENANTHERA [Concomitant]
     Dosage: 22.5 MG, 3X/DAY
     Route: 048
  31. DOXORUBICIN HYDROCHLORIDE [Concomitant]
     Active Substance: DOXORUBICIN HYDROCHLORIDE
     Indication: Hodgkin^s disease nodular sclerosis
     Dosage: 20 MG, 1X/DAY
     Route: 042
     Dates: start: 20230830, end: 20230830
  32. VINDESINE SULFATE [Concomitant]
     Active Substance: VINDESINE SULFATE
     Indication: Hodgkin^s disease nodular sclerosis
     Dosage: 4 MG, 1X/DAY
     Route: 042
     Dates: start: 20230830, end: 20230830

REACTIONS (3)
  - Hepatic failure [Unknown]
  - Myelosuppression [Unknown]
  - Off label use [Recovered/Resolved]

NARRATIVE: CASE EVENT DATE: 20230816
